FAERS Safety Report 17754708 (Version 1)
Quarter: 2020Q2

REPORT INFORMATION
  Report Type: Spontaneous
  Country: CN (occurrence: CN)
  Receive Date: 20200506
  Receipt Date: 20200506
  Transmission Date: 20200714
  Serious: Yes (Other)
  Sender: FDA-Public Use
  Company Number: CN-ROCHE-2590810

PATIENT
  Age: 53 Year
  Sex: Female

DRUGS (10)
  1. EPIRUBICIN [Concomitant]
     Active Substance: EPIRUBICIN
  2. ASPIRIN [ACETYLSALICYLIC ACID] [Concomitant]
     Active Substance: ASPIRIN
  3. CLOPIDOGREL HYDROGEN SULFATE [Concomitant]
     Active Substance: CLOPIDOGREL BISULFATE
  4. OMEPRAZOLE. [Concomitant]
     Active Substance: OMEPRAZOLE
  5. TEPRENONE [Concomitant]
     Active Substance: TEPRENONE
  6. MABTHERA [Suspect]
     Active Substance: RITUXIMAB
     Indication: DIFFUSE LARGE B-CELL LYMPHOMA
     Route: 065
     Dates: start: 20190926
  7. VINORELBINE [Concomitant]
     Active Substance: VINORELBINE TARTRATE
  8. METHYLPREDNISOLONE. [Concomitant]
     Active Substance: METHYLPREDNISOLONE
  9. ALPRAZOLAM. [Concomitant]
     Active Substance: ALPRAZOLAM
  10. CYCLOPHOSPHAMIDE. [Concomitant]
     Active Substance: CYCLOPHOSPHAMIDE

REACTIONS (6)
  - Cough [Unknown]
  - Gastric mucosal lesion [Unknown]
  - Hepatic function abnormal [Unknown]
  - Pyrexia [Unknown]
  - Bone marrow failure [Unknown]
  - Chills [Unknown]
